FAERS Safety Report 5139542-2 (Version None)
Quarter: 2006Q4

REPORT INFORMATION
  Report Type: 
  Country: None (occurrence: None)
  Receive Date: 20061024
  Receipt Date: 20061011
  Transmission Date: 20070319
  Serious: Yes (Hospitalization, Other)
  Sender: FDA-Public Use
  Company Number: 2006124096

PATIENT
  Age: 59 Year
  Sex: Male
  Weight: 62 kg

DRUGS (7)
  1. SUTENT [Suspect]
     Indication: RENAL CELL CARCINOMA STAGE UNSPECIFIED
     Dosage: 50 MG (50 MG, 1 IN 1 D), ORAL
     Route: 048
     Dates: start: 20060817, end: 20060914
  2. PREDUCTAL (TRIMETAZIDINE) [Concomitant]
  3. MOLSIDOMINE (MOLSIDOMINE) [Concomitant]
  4. PRESTARIUM (PERINDOPRIL) [Concomitant]
  5. DIOLAN (ETHYLMORPHINE) [Concomitant]
  6. MILURIT (ALLOPURINOL) [Concomitant]
  7. LISINOPRIL [Concomitant]

REACTIONS (6)
  - ARTERIOSCLEROSIS [None]
  - CEREBRAL ISCHAEMIA [None]
  - GRAND MAL CONVULSION [None]
  - METASTASES TO TRACHEA [None]
  - NERVOUS SYSTEM DISORDER [None]
  - PNEUMONIA [None]
